FAERS Safety Report 19879664 (Version 1)
Quarter: 2021Q3

REPORT INFORMATION
  Report Type: Spontaneous
  Country: TR (occurrence: TR)
  Receive Date: 20210924
  Receipt Date: 20210924
  Transmission Date: 20211014
  Serious: Yes (Other)
  Sender: FDA-Public Use
  Company Number: TR-PFIZER INC-202101210848

PATIENT
  Age: 28 Year
  Sex: Male

DRUGS (3)
  1. LYRICA [Suspect]
     Active Substance: PREGABALIN
     Dosage: 300 MG, 1X/DAY
     Dates: start: 2019
  2. LYRICA [Suspect]
     Active Substance: PREGABALIN
     Dosage: 18 DF, 1X/DAY
  3. LYRICA [Suspect]
     Active Substance: PREGABALIN
     Dosage: CURRENTLY USE IT 1?2 TIMES A WEEK

REACTIONS (8)
  - Drug abuse [Unknown]
  - Suicidal ideation [Unknown]
  - Intentional overdose [Unknown]
  - Hyperhidrosis [Unknown]
  - Depressed mood [Unknown]
  - Off label use [Unknown]
  - Wrong technique in product usage process [Unknown]
  - Amnesia [Unknown]
